FAERS Safety Report 14842289 (Version 5)
Quarter: 2021Q1

REPORT INFORMATION
  Report Type: Spontaneous
  Country: DE (occurrence: DE)
  Receive Date: 20180503
  Receipt Date: 20210305
  Transmission Date: 20210419
  Serious: Yes (Hospitalization)
  Sender: FDA-Public Use
  Company Number: DE-AUROBINDO-AUR-APL-2018-023104

PATIENT
  Age: 79 Year
  Sex: Female

DRUGS (94)
  1. RAMIPRIL. [Suspect]
     Active Substance: RAMIPRIL
     Dosage: 2.5 MG, BID
     Route: 048
  2. PREGABALIN. [Suspect]
     Active Substance: PREGABALIN
     Indication: PRODUCT USED FOR UNKNOWN INDICATION
     Dosage: 20 MILLIGRAM
     Route: 065
  3. PREGABALIN. [Suspect]
     Active Substance: PREGABALIN
     Dosage: 25 MG, 1?0?1?0 ()
     Route: 065
  4. PREGABALIN. [Suspect]
     Active Substance: PREGABALIN
     Dosage: 25 MG,BID
  5. URAPIDIL [Suspect]
     Active Substance: URAPIDIL
     Indication: PRODUCT USED FOR UNKNOWN INDICATION
     Dosage: 60 MILLIGRAM, 60 MG, 1?0?1?0
     Route: 065
  6. METOPROLOL. [Suspect]
     Active Substance: METOPROLOL
     Route: 048
  7. METOPROLOL. [Suspect]
     Active Substance: METOPROLOL
     Dosage: 23.75 MG, 1?0?1?0
     Route: 048
  8. AMITRIPTYLINE [Suspect]
     Active Substance: AMITRIPTYLINE
     Dosage: 50 MG,1?0?0.5?0
     Route: 065
  9. DEKRISTOL [Concomitant]
     Active Substance: CHOLECALCIFEROL
     Indication: PRODUCT USED FOR UNKNOWN INDICATION
     Dosage: UNK, 20000 IE, 1X/WEEK
     Route: 065
  10. DEKRISTOL [Concomitant]
     Active Substance: CHOLECALCIFEROL
     Route: 065
  11. TORASEMIDE [Concomitant]
     Active Substance: TORSEMIDE
     Indication: PRODUCT USED FOR UNKNOWN INDICATION
     Dosage: 5 MILLIGRAM, ONCE A DAY, 5 MG, 1?0?0?0
     Route: 065
  12. SITAGLIPTIN [Concomitant]
     Active Substance: SITAGLIPTIN
     Route: 065
  13. MOVICOL [Concomitant]
     Active Substance: POLYETHYLENE GLYCOL 3350\POTASSIUM CHLORIDE\SODIUM BICARBONATE\SODIUM CHLORIDE
     Indication: PRODUCT USED FOR UNKNOWN INDICATION
     Dosage: UNK, NK MG, 1?1?0?0
     Route: 065
  14. MOVICOL [Concomitant]
     Active Substance: POLYETHYLENE GLYCOL 3350\POTASSIUM CHLORIDE\SODIUM BICARBONATE\SODIUM CHLORIDE
     Dosage: NK MG, 1?1?0?0 ()
  15. RAMIPRIL. [Suspect]
     Active Substance: RAMIPRIL
     Dosage: UNK ()
  16. AMLODIPINE [Suspect]
     Active Substance: AMLODIPINE BESYLATE
     Indication: PRODUCT USED FOR UNKNOWN INDICATION
     Dosage: 5 MILLIGRAM
     Route: 065
  17. PREGABALIN. [Suspect]
     Active Substance: PREGABALIN
     Dosage: 25 MG, 1?0?1?0
     Route: 065
  18. FENTANYL. [Suspect]
     Active Substance: FENTANYL
     Dosage: 100 MICROGRAM
     Route: 065
  19. URAPIDIL [Suspect]
     Active Substance: URAPIDIL
     Dosage: ()
     Route: 065
  20. URAPIDIL [Suspect]
     Active Substance: URAPIDIL
     Route: 065
  21. URAPIDIL [Suspect]
     Active Substance: URAPIDIL
     Dosage: 60 MG,BID
     Route: 065
  22. METOPROLOL. [Suspect]
     Active Substance: METOPROLOL
     Indication: PRODUCT USED FOR UNKNOWN INDICATION
     Dosage: 23.75 MILLIGRAM, 23.75 MG, 1?0?1?0
     Route: 065
  23. METOPROLOL. [Suspect]
     Active Substance: METOPROLOL
     Dosage: ()
     Route: 065
  24. METOPROLOL. [Suspect]
     Active Substance: METOPROLOL
     Dosage: 23.75 MG, 1?0?1?0 ()
     Route: 065
  25. SITAGLIPTIN [Concomitant]
     Active Substance: SITAGLIPTIN
     Indication: PRODUCT USED FOR UNKNOWN INDICATION
     Dosage: 50 MILLIGRAM, ONCE A DAY, 50 MG, 1?0?0?0
     Route: 065
  26. SITAGLIPTIN [Concomitant]
     Active Substance: SITAGLIPTIN
     Dosage: ()
  27. SITAGLIPTIN [Concomitant]
     Active Substance: SITAGLIPTIN
     Dosage: 50 MG,QD
  28. AMLODIPINE [Suspect]
     Active Substance: AMLODIPINE BESYLATE
     Route: 048
  29. PREGABALIN. [Suspect]
     Active Substance: PREGABALIN
     Dosage: 25 MG,BID
     Route: 065
  30. FENTANYL. [Suspect]
     Active Substance: FENTANYL
     Dosage: 100 ?G, WECHSEL ALLE 3D ()
     Route: 062
  31. METAMIZOL [Suspect]
     Active Substance: METAMIZOLE SODIUM
     Indication: PRODUCT USED FOR UNKNOWN INDICATION
     Dosage: 1 GRAM, 1 G, 1?1?1?0
     Route: 065
  32. METOPROLOL. [Suspect]
     Active Substance: METOPROLOL
     Dosage: UNK ()
  33. AMITRIPTYLINE [Suspect]
     Active Substance: AMITRIPTYLINE
     Dosage: 50 MG, 1?0?0.5?0 ()
     Route: 065
  34. AMITRIPTYLINE [Suspect]
     Active Substance: AMITRIPTYLINE
     Dosage: 1?0?0.5?0 : FREQUENCY
     Route: 065
  35. AMITRIPTYLINE [Suspect]
     Active Substance: AMITRIPTYLINE
     Dosage: 50 MG, 1?0?0.5?0
     Route: 065
  36. CARBIMAZOLE [Concomitant]
     Active Substance: CARBIMAZOLE
     Route: 065
  37. CARBIMAZOLE [Concomitant]
     Active Substance: CARBIMAZOLE
     Dosage: 5 MG,QD
     Route: 065
  38. TORASEMIDE [Concomitant]
     Active Substance: TORSEMIDE
     Dosage: 5 MG, 1?0?0?0 ()
  39. TORASEMIDE [Concomitant]
     Active Substance: TORSEMIDE
     Dosage: 5 MG, 1?0?0?0
  40. TORASEMIDE [Concomitant]
     Active Substance: TORSEMIDE
     Dosage: 5 MG,QD
  41. FENTANYL. [Suspect]
     Active Substance: FENTANYL
     Dosage: 100 ?G, WECHSEL ALLE 3D
     Route: 062
  42. METOPROLOL. [Suspect]
     Active Substance: METOPROLOL
     Route: 048
  43. AMITRIPTYLINE [Suspect]
     Active Substance: AMITRIPTYLINE
     Indication: PRODUCT USED FOR UNKNOWN INDICATION
     Dosage: 50 MILLIGRAM, 50 MG, 1?0?0.5?0
     Route: 065
  44. SIMVASTATIN. [Concomitant]
     Active Substance: SIMVASTATIN
     Indication: PRODUCT USED FOR UNKNOWN INDICATION
     Dosage: 20 MILLIGRAM, 20 MG, 0?0?1?0
     Route: 065
  45. DEKRISTOL [Concomitant]
     Active Substance: CHOLECALCIFEROL
     Dosage: 20000 IE, 1X/WEEK ()
  46. DEKRISTOL [Concomitant]
     Active Substance: CHOLECALCIFEROL
     Dosage: 2000 IU,QW
     Route: 065
  47. CARBIMAZOLE [Concomitant]
     Active Substance: CARBIMAZOLE
     Dosage: 5 MG, 1?0?0?0 ()
  48. TORASEMIDE [Concomitant]
     Active Substance: TORSEMIDE
     Dosage: ()
  49. TORASEMIDE [Concomitant]
     Active Substance: TORSEMIDE
     Route: 065
  50. TORASEMIDE [Concomitant]
     Active Substance: TORSEMIDE
     Dosage: 5 MG,QD
  51. SITAGLIPTIN [Concomitant]
     Active Substance: SITAGLIPTIN
     Dosage: 50 MG,QD
  52. OXYCODONE [Suspect]
     Active Substance: OXYCODONE
     Indication: PRODUCT USED FOR UNKNOWN INDICATION
     Dosage: 20 MILLIGRAM, TWO TIMES A DAY
     Route: 065
  53. PREGABALIN. [Suspect]
     Active Substance: PREGABALIN
     Dosage: 50 MILLIGRAM
     Route: 065
  54. FENTANYL. [Suspect]
     Active Substance: FENTANYL
     Indication: PRODUCT USED FOR UNKNOWN INDICATION
     Dosage: 100 MICROGRAM, WECHSEL ALLE 3D
     Route: 062
  55. FENTANYL. [Suspect]
     Active Substance: FENTANYL
     Dosage: 100 UG,Q3D
  56. URAPIDIL [Suspect]
     Active Substance: URAPIDIL
     Dosage: 60 MG, 1?0?1?0 ()
     Route: 065
  57. URAPIDIL [Suspect]
     Active Substance: URAPIDIL
     Route: 065
  58. CARBIMAZOLE [Concomitant]
     Active Substance: CARBIMAZOLE
     Indication: PRODUCT USED FOR UNKNOWN INDICATION
     Dosage: 5 MILLIGRAM, ONCE A DAY, 5 MG, 1?0?0?0
     Route: 065
  59. CARBIMAZOLE [Concomitant]
     Active Substance: CARBIMAZOLE
     Route: 065
  60. DULOXETINA [Concomitant]
     Active Substance: DULOXETINE
     Indication: PRODUCT USED FOR UNKNOWN INDICATION
     Dosage: 30 MILLIGRAM, 30 MG, 1?0?1?0
     Route: 065
  61. SITAGLIPTIN [Concomitant]
     Active Substance: SITAGLIPTIN
     Dosage: 50 MG, 1?0?0?0
  62. RAMIPRIL. [Suspect]
     Active Substance: RAMIPRIL
     Indication: PRODUCT USED FOR UNKNOWN INDICATION
     Dosage: 5 MILLIGRAM, TWO TIMES A DAY
     Route: 065
  63. RAMIPRIL. [Suspect]
     Active Substance: RAMIPRIL
     Dosage: 5 MG, 0.5?0?0?0.5 ()
     Route: 048
  64. OXYCODONE [Suspect]
     Active Substance: OXYCODONE
     Dosage: 20 MG, 1?0?1?0 ()
     Route: 065
  65. AMLODIPINE [Suspect]
     Active Substance: AMLODIPINE BESYLATE
     Route: 048
  66. URAPIDIL [Suspect]
     Active Substance: URAPIDIL
     Dosage: 60 MG, 1?0?1?0
     Route: 065
  67. METOPROLOL. [Suspect]
     Active Substance: METOPROLOL
     Dosage: 23.75 MG, 1?0?1?0
     Route: 048
  68. DEKRISTOL [Concomitant]
     Active Substance: CHOLECALCIFEROL
     Dosage: ()
  69. DEKRISTOL [Concomitant]
     Active Substance: CHOLECALCIFEROL
     Route: 065
  70. PANTOPRAZOL [Concomitant]
     Active Substance: PANTOPRAZOLE SODIUM
     Indication: PRODUCT USED FOR UNKNOWN INDICATION
     Dosage: 40 MILLIGRAM, ONCE A DAY, 40 MG, 1?0?0?0
     Route: 065
  71. SITAGLIPTIN [Concomitant]
     Active Substance: SITAGLIPTIN
     Dosage: 50 MG, 1?0?0?0 ()
  72. MOVICOL [Concomitant]
     Active Substance: POLYETHYLENE GLYCOL 3350\POTASSIUM CHLORIDE\SODIUM BICARBONATE\SODIUM CHLORIDE
     Dosage: NK MG, 1?1?0?0 ()
  73. RAMIPRIL. [Suspect]
     Active Substance: RAMIPRIL
     Dosage: 5 MILLIGRAM
     Route: 048
  74. RAMIPRIL. [Suspect]
     Active Substance: RAMIPRIL
     Dosage: 5 MG, 0.5?0?0?0.5
     Route: 048
  75. RAMIPRIL. [Suspect]
     Active Substance: RAMIPRIL
     Dosage: 2.5 MG, BID
     Route: 048
  76. OXYCODONE [Suspect]
     Active Substance: OXYCODONE
     Dosage: 40 MILLIGRAM
     Route: 065
  77. PREGABALIN. [Suspect]
     Active Substance: PREGABALIN
     Route: 065
  78. URAPIDIL [Suspect]
     Active Substance: URAPIDIL
     Dosage: UNK ()
  79. METOPROLOL. [Suspect]
     Active Substance: METOPROLOL
     Dosage: 23.75 MG,BID
     Route: 048
  80. AMITRIPTYLINE [Suspect]
     Active Substance: AMITRIPTYLINE
     Dosage: ()
     Route: 065
  81. TORASEMIDE [Concomitant]
     Active Substance: TORSEMIDE
     Route: 065
  82. MOVICOL [Concomitant]
     Active Substance: POLYETHYLENE GLYCOL 3350\POTASSIUM CHLORIDE\SODIUM BICARBONATE\SODIUM CHLORIDE
     Dosage: NK MG,BID ()
  83. RAMIPRIL. [Suspect]
     Active Substance: RAMIPRIL
     Dosage: 5 MILLIGRAM
     Route: 048
  84. FENTANYL. [Suspect]
     Active Substance: FENTANYL
     Dosage: 100 MICROGRAM
     Route: 065
  85. FENTANYL. [Suspect]
     Active Substance: FENTANYL
     Dosage: 100 UG,Q3D
     Route: 062
  86. URAPIDIL [Suspect]
     Active Substance: URAPIDIL
     Dosage: 60 MG,BID
     Route: 065
  87. AMITRIPTYLINE [Suspect]
     Active Substance: AMITRIPTYLINE
     Dosage: 1?0?0.5?0 : FREQUENCY
     Route: 065
  88. AMITRIPTYLINE [Suspect]
     Active Substance: AMITRIPTYLINE
     Dosage: 50 MG, 1?0?0.5?0
     Route: 065
  89. DEKRISTOL [Concomitant]
     Active Substance: CHOLECALCIFEROL
     Dosage: 20000 IE, 1X/WEEK
  90. DEKRISTOL [Concomitant]
     Active Substance: CHOLECALCIFEROL
     Dosage: 20000 IE, 1X/WEEK
     Route: 065
  91. CARBIMAZOLE [Concomitant]
     Active Substance: CARBIMAZOLE
     Dosage: 5 MG, 1?0?0?0
  92. SITAGLIPTIN [Concomitant]
     Active Substance: SITAGLIPTIN
     Route: 065
  93. MOVICOL [Concomitant]
     Active Substance: POLYETHYLENE GLYCOL 3350\POTASSIUM CHLORIDE\SODIUM BICARBONATE\SODIUM CHLORIDE
     Dosage: ()
  94. MOVICOL [Concomitant]
     Active Substance: POLYETHYLENE GLYCOL 3350\POTASSIUM CHLORIDE\SODIUM BICARBONATE\SODIUM CHLORIDE
     Dosage: NK MG, 1?1?0?0 ()

REACTIONS (4)
  - Hypotension [Unknown]
  - Dizziness [Unknown]
  - Asthenia [Unknown]
  - General physical health deterioration [Unknown]
